FAERS Safety Report 19960371 (Version 1)
Quarter: 2021Q4

REPORT INFORMATION
  Report Type: Spontaneous
  Country: FR (occurrence: FR)
  Receive Date: 20211015
  Receipt Date: 20211015
  Transmission Date: 20220303
  Serious: Yes (Life-Threatening, Other)
  Sender: FDA-Public Use
  Company Number: None

PATIENT
  Age: 52 Year
  Sex: Male
  Weight: 104 kg

DRUGS (4)
  1. RISPERIDONE [Suspect]
     Active Substance: RISPERIDONE
     Indication: Major depression
     Dosage: 2 MILLIGRAM, QD
     Route: 048
     Dates: start: 202008, end: 20210501
  2. PAROXETINE [Suspect]
     Active Substance: PAROXETINE
     Indication: Major depression
     Dosage: 10 MILLIGRAM, QD
     Route: 048
     Dates: start: 202008, end: 20210501
  3. LORAZEPAM [Suspect]
     Active Substance: LORAZEPAM
     Indication: Major depression
     Dosage: 1 MILLIGRAM, QD
     Route: 048
     Dates: start: 202008, end: 20210501
  4. PANTOPRAZOLE [Suspect]
     Active Substance: PANTOPRAZOLE
     Indication: Product used for unknown indication
     Dosage: 20 MILLIGRAM, QD
     Route: 048
     Dates: end: 20210501

REACTIONS (2)
  - Pancreatitis [Recovered/Resolved with Sequelae]
  - Hypertriglyceridaemia [Recovering/Resolving]

NARRATIVE: CASE EVENT DATE: 20210501
